FAERS Safety Report 9847267 (Version 1)
Quarter: 2014Q1

REPORT INFORMATION
  Report Type: Spontaneous
  Country: US (occurrence: US)
  Receive Date: 20140127
  Receipt Date: 20140127
  Transmission Date: 20141002
  Serious: Yes (Hospitalization)
  Sender: FDA-Public Use
  Company Number: US-DYAX CORP.-2013DX000162

PATIENT
  Age: 30 Year
  Sex: Female
  Weight: 86.26 kg

DRUGS (10)
  1. KALBITOR [Suspect]
     Indication: HEREDITARY ANGIOEDEMA
     Route: 058
     Dates: start: 20130818, end: 20130818
  2. KALBITOR [Suspect]
     Route: 058
     Dates: start: 200905
  3. PROZAC [Concomitant]
     Indication: ANXIETY
     Route: 048
     Dates: start: 2009
  4. LAMICTAL [Concomitant]
     Indication: ANXIETY
     Route: 048
     Dates: start: 2009
  5. PHENERGAN [Concomitant]
     Indication: NAUSEA
     Route: 048
     Dates: start: 2004
  6. HYDROCODONE [Concomitant]
     Indication: PAIN
     Route: 048
     Dates: start: 2004
  7. XANAX [Concomitant]
     Indication: ANXIETY
     Route: 048
     Dates: start: 2009
  8. FIRAZYR [Concomitant]
     Indication: HEREDITARY ANGIOEDEMA
     Route: 058
     Dates: start: 20130817, end: 20130817
  9. FIRAZYR [Concomitant]
     Route: 058
     Dates: start: 20130816, end: 20130816
  10. FIRAZYR [Concomitant]
     Route: 058
     Dates: start: 2009

REACTIONS (1)
  - Hereditary angioedema [Recovered/Resolved]
